FAERS Safety Report 5607768-7 (Version None)
Quarter: 2008Q1

REPORT INFORMATION
  Report Type: 
  Country: None (occurrence: None)
  Receive Date: 20080130
  Receipt Date: 20080129
  Transmission Date: 20080703
  Serious: Yes (Other)
  Sender: FDA-Public Use
  Company Number: DE-BRISTOL-MYERS SQUIBB COMPANY-13755491

PATIENT
  Age: 69 Year
  Sex: Female

DRUGS (5)
  1. LYSODREN [Suspect]
     Indication: ADRENOCORTICAL CARCINOMA
     Dosage: MITOTANE WAS GIVEN ORALLY 2000MG PER DAY FROM 20-APR-2007 AND IT WAS ONGOING.
     Route: 048
     Dates: start: 20060819, end: 20070419
  2. HYDROCORTISONE [Concomitant]
     Indication: ADRENAL INSUFFICIENCY
     Dates: start: 20060801
  3. LEVOTHYROXINE SODIUM [Concomitant]
     Indication: HYPOTHYROIDISM
  4. ASTONIN-H [Concomitant]
     Indication: ADRENAL INSUFFICIENCY
     Dates: start: 20070402
  5. RAMIPRIL [Concomitant]
     Indication: HYPERTENSION

REACTIONS (4)
  - HEPATIC ENZYME INCREASED [None]
  - HYPERCHOLESTEROLAEMIA [None]
  - LEUKOPENIA [None]
  - OVERDOSE [None]
